FAERS Safety Report 25940238 (Version 1)
Quarter: 2025Q4

REPORT INFORMATION
  Report Type: Spontaneous
  Country: AR (occurrence: AR)
  Receive Date: 20251020
  Receipt Date: 20251020
  Transmission Date: 20260117
  Serious: Yes (Hospitalization)
  Sender: PFIZER
  Company Number: AR-PFIZER INC-202500138025

PATIENT
  Age: 6 Year
  Sex: Male

DRUGS (7)
  1. GENOTROPIN [Suspect]
     Active Substance: SOMATROPIN
     Indication: Short stature
     Dosage: 0.8 MG, 6 TIMES PER WEEK
     Dates: start: 20230627
  2. OXYBUTYNIN [Concomitant]
     Active Substance: OXYBUTYNIN
  3. CEFALEXINA [CEFALEXIN] [Concomitant]
  4. FOLIC ACID [Concomitant]
     Active Substance: FOLIC ACID
  5. SULFATO FERROSO [Concomitant]
  6. ENALAPRIL [Concomitant]
     Active Substance: ENALAPRIL
  7. CHOLECALCIFEROL [Concomitant]
     Active Substance: CHOLECALCIFEROL

REACTIONS (2)
  - Urinary tract infection [Unknown]
  - Diarrhoea [Unknown]

NARRATIVE: CASE EVENT DATE: 20250701
